FAERS Safety Report 5474656-9 (Version None)
Quarter: 2007Q3

REPORT INFORMATION
  Report Type: 
  Country: None (occurrence: None)
  Receive Date: 20070831
  Receipt Date: 20070601
  Transmission Date: 20080115
  Serious: Yes (Hospitalization)
  Sender: FDA-Public Use
  Company Number: 263234

PATIENT
  Age: 75 Year
  Sex: Male

DRUGS (11)
  1. NOVOLIN 70/30 [Suspect]
     Indication: INSULIN-REQUIRING TYPE II DIABETES MELLITUS
     Dosage: 35 IU, BID, SUBCUTANEOUS
     Route: 058
     Dates: start: 19960101, end: 20070416
  2. ALENDRONATE SODIUM [Concomitant]
  3. HYDROCHLOROTHIAZIDE [Concomitant]
  4. SYNTHROID (LEVOTHYROXINE SODIUM POWDER AND SOLVENT FOR SOLUTION FOR IN [Concomitant]
  5. LISINOPRIL [Concomitant]
  6. SIMVASTATIN [Concomitant]
  7. METFORMIN (METFORMIN TABLET, 850 MG [Concomitant]
  8. ASPIRIN [Concomitant]
  9. CALCIUM + VITAMIN D (CALCIUM, COLECALCIFEROL) [Concomitant]
  10. VITAMIN E [Concomitant]
  11. MULTIVITAMIN [Concomitant]

REACTIONS (1)
  - BLOOD GLUCOSE DECREASED [None]
